FAERS Safety Report 19971973 (Version 1)
Quarter: 2021Q4

REPORT INFORMATION
  Report Type: Spontaneous
  Country: US (occurrence: US)
  Receive Date: 20211019
  Receipt Date: 20211019
  Transmission Date: 20220304
  Serious: Yes (Other)
  Sender: FDA-Public Use
  Company Number: US-TEVA-2021-US-1964990

PATIENT
  Sex: Female

DRUGS (1)
  1. NUVIGIL [Suspect]
     Active Substance: ARMODAFINIL
     Dosage: 250 MILLIGRAM DAILY;
     Route: 048

REACTIONS (17)
  - Near death experience [Unknown]
  - Loss of consciousness [Unknown]
  - Suicidal ideation [Recovered/Resolved]
  - Nausea [Unknown]
  - Somnolence [Unknown]
  - Asthenia [Unknown]
  - Vertigo [Unknown]
  - Heart rate abnormal [Unknown]
  - Renal pain [Unknown]
  - Dark circles under eyes [Unknown]
  - Movement disorder [Unknown]
  - Palpitations [Unknown]
  - Pain [Unknown]
  - Depression [Recovered/Resolved]
  - Negative thoughts [Unknown]
  - Feeling abnormal [Unknown]
  - Fatigue [Unknown]
